FAERS Safety Report 5318773-2 (Version None)
Quarter: 2007Q2

REPORT INFORMATION
  Report Type: 
  Country: None (occurrence: None)
  Receive Date: 20070504
  Receipt Date: 20070504
  Transmission Date: 20071010
  Serious: Yes (Other)
  Sender: FDA-Public Use
  Company Number: None

PATIENT
  Age: 77 Year
  Sex: Male
  Weight: 128 kg

DRUGS (1)
  1. VANCOMYCIN [Suspect]
     Indication: DEVICE RELATED INFECTION
     Dosage: 1500 MG EVERY 24 HOURS
     Dates: start: 20070421

REACTIONS (4)
  - BURNING SENSATION [None]
  - DYSPNOEA [None]
  - INFUSION RELATED REACTION [None]
  - MUSCLE TWITCHING [None]
